FAERS Safety Report 9970499 (Version 1)
Quarter: 2014Q1

REPORT INFORMATION
  Report Type: Report from Study
  Country: US (occurrence: US)
  Receive Date: 20140306
  Receipt Date: 20140306
  Transmission Date: 20141002
  Serious: No
  Sender: FDA-Public Use
  Company Number: US-ABBVIE-13P-163-1150544-00

PATIENT
  Sex: Male

DRUGS (3)
  1. HUMIRA [Suspect]
     Indication: RHEUMATOID ARTHRITIS
     Dates: start: 20120927, end: 201305
  2. MEDICATION FOR DIABETES [Concomitant]
     Indication: DIABETES MELLITUS
  3. MEDICATION FOR HYPERTENSION [Concomitant]
     Indication: HYPERTENSION

REACTIONS (2)
  - Fatigue [Not Recovered/Not Resolved]
  - Stomatitis [Recovering/Resolving]
